FAERS Safety Report 4393659-9 (Version None)
Quarter: 2004Q3

REPORT INFORMATION
  Report Type: 
  Country: None (occurrence: None)
  Receive Date: 20040709
  Receipt Date: 20030130
  Transmission Date: 20050211
  Serious: Yes (Death)
  Sender: FDA-Public Use
  Company Number: US-MERCK-0302USA00074

PATIENT
  Age: 83 Year
  Sex: Female

DRUGS (9)
  1. AZOPT DROPS [Concomitant]
     Route: 065
  2. OCUPRESS [Concomitant]
     Route: 065
  3. PREMPRO [Concomitant]
     Route: 065
     Dates: end: 20010301
  4. MAXZIDE [Concomitant]
     Route: 065
     Dates: end: 20010801
  5. LEVOXYL [Concomitant]
     Route: 065
  6. VIOXX [Suspect]
     Indication: ARTHRALGIA
     Route: 048
     Dates: start: 20001101, end: 20010701
  7. VIOXX [Suspect]
     Route: 048
     Dates: start: 20000201
  8. VIOXX [Suspect]
     Indication: ARTHRITIS
     Route: 048
     Dates: start: 20001101, end: 20010701
  9. VIOXX [Suspect]
     Route: 048
     Dates: start: 20000201

REACTIONS (16)
  - ADVERSE EVENT [None]
  - ALOPECIA [None]
  - ANAEMIA [None]
  - ASTHENIA [None]
  - BLOOD CREATININE INCREASED [None]
  - CONTUSION [None]
  - DEATH [None]
  - DECREASED APPETITE [None]
  - DIZZINESS [None]
  - DIZZINESS POSTURAL [None]
  - FAILURE TO THRIVE [None]
  - FATIGUE [None]
  - SALIVARY GLAND NEOPLASM [None]
  - SKIN LACERATION [None]
  - URINARY RETENTION [None]
  - URINARY TRACT INFECTION [None]
